FAERS Safety Report 14009824 (Version 6)
Quarter: 2017Q3

REPORT INFORMATION
  Report Type: Spontaneous
  Country: ES (occurrence: ES)
  Receive Date: 20170925
  Receipt Date: 20170928
  Transmission Date: 20171128
  Serious: Yes (Other)
  Sender: FDA-Public Use
  Company Number: PHHY2017ES139409

PATIENT
  Age: 63 Year
  Sex: Male

DRUGS (4)
  1. TROPICAMIDE. [Suspect]
     Active Substance: TROPICAMIDE
     Indication: INFECTION PROPHYLAXIS
     Dosage: UNK
     Route: 047
  2. POVIDONE-IODINE. [Suspect]
     Active Substance: POVIDONE-IODINE
     Indication: INFECTION PROPHYLAXIS
     Dosage: UNK
     Route: 047
  3. AZYDROP [Suspect]
     Active Substance: AZITHROMYCIN DIHYDRATE
     Indication: INFECTION PROPHYLAXIS
     Dosage: UNK
     Route: 047
  4. MOXIFLOXACIN. [Concomitant]
     Active Substance: MOXIFLOXACIN
     Indication: INFECTION PROPHYLAXIS
     Dosage: UNK
     Route: 047

REACTIONS (4)
  - Blepharitis allergic [Unknown]
  - Conjunctival hyperaemia [Unknown]
  - Eyelid oedema [Unknown]
  - Erythema of eyelid [Unknown]
